FAERS Safety Report 21408353 (Version 1)
Quarter: 2022Q4

REPORT INFORMATION
  Report Type: Report from Study
  Country: CN (occurrence: CN)
  Receive Date: 20221004
  Receipt Date: 20221004
  Transmission Date: 20230113
  Serious: Yes (Other)
  Sender: FDA-Public Use
  Company Number: CN-JNJFOC-20220959194

PATIENT

DRUGS (22)
  1. RISPERIDONE [Suspect]
     Active Substance: RISPERIDONE
     Indication: Schizophrenia
     Route: 065
  2. RISPERIDONE [Suspect]
     Active Substance: RISPERIDONE
     Indication: Bipolar disorder
  3. RISPERIDONE [Suspect]
     Active Substance: RISPERIDONE
     Indication: Depression
  4. RISPERIDONE [Suspect]
     Active Substance: RISPERIDONE
     Indication: Substance abuse
  5. RISPERIDONE [Suspect]
     Active Substance: RISPERIDONE
     Indication: Psychotic disorder
  6. RISPERIDONE [Suspect]
     Active Substance: RISPERIDONE
     Indication: Mania
  7. RISPERIDONE [Suspect]
     Active Substance: RISPERIDONE
     Indication: Substance abuse
  8. RISPERIDONE [Suspect]
     Active Substance: RISPERIDONE
     Indication: Epileptic psychosis
  9. RISPERIDONE [Suspect]
     Active Substance: RISPERIDONE
     Indication: Intellectual disability
  10. RISPERIDONE [Suspect]
     Active Substance: RISPERIDONE
     Indication: Mental disorder
  11. RISPERIDONE [Suspect]
     Active Substance: RISPERIDONE
     Indication: Psychotic disorder due to a general medical condition
  12. TOPIRAMATE [Suspect]
     Active Substance: TOPIRAMATE
     Indication: Schizophrenia
     Route: 065
  13. TOPIRAMATE [Suspect]
     Active Substance: TOPIRAMATE
     Indication: Bipolar disorder
  14. TOPIRAMATE [Suspect]
     Active Substance: TOPIRAMATE
     Indication: Depression
  15. TOPIRAMATE [Suspect]
     Active Substance: TOPIRAMATE
     Indication: Substance abuse
  16. TOPIRAMATE [Suspect]
     Active Substance: TOPIRAMATE
     Indication: Psychotic disorder
  17. TOPIRAMATE [Suspect]
     Active Substance: TOPIRAMATE
     Indication: Mania
  18. TOPIRAMATE [Suspect]
     Active Substance: TOPIRAMATE
     Indication: Epileptic psychosis
  19. TOPIRAMATE [Suspect]
     Active Substance: TOPIRAMATE
     Indication: Intellectual disability
  20. TOPIRAMATE [Suspect]
     Active Substance: TOPIRAMATE
     Indication: Mental disorder
  21. TOPIRAMATE [Suspect]
     Active Substance: TOPIRAMATE
     Indication: Psychotic disorder due to a general medical condition
  22. TOPIRAMATE [Suspect]
     Active Substance: TOPIRAMATE
     Indication: Substance abuse

REACTIONS (51)
  - Electrocardiogram QT prolonged [Unknown]
  - Dystonia [Recovering/Resolving]
  - Tardive dyskinesia [Recovering/Resolving]
  - Hyperprolactinaemia [Unknown]
  - Anticholinergic syndrome [Unknown]
  - Product use in unapproved indication [Unknown]
  - Intentional product use issue [Unknown]
  - Incorrect dose administered [Unknown]
  - Extrapyramidal disorder [Unknown]
  - Akathisia [Recovering/Resolving]
  - Hypertonia [Unknown]
  - Sedation complication [Unknown]
  - Somnolence [Unknown]
  - Salivary hypersecretion [Unknown]
  - Dizziness [Unknown]
  - Restlessness [Unknown]
  - Muscle discomfort [Unknown]
  - Blunted affect [Unknown]
  - Sinus tachycardia [Unknown]
  - Chest discomfort [Unknown]
  - Palpitations [Unknown]
  - Electrocardiogram abnormal [Unknown]
  - Orthostatic hypotension [Unknown]
  - Sinus bradycardia [Unknown]
  - Arrhythmia supraventricular [Unknown]
  - Hepatic function abnormal [Unknown]
  - Transaminases increased [Unknown]
  - Vomiting [Unknown]
  - Nasal obstruction [Unknown]
  - Amenorrhoea [Unknown]
  - Menstrual disorder [Unknown]
  - Polycystic ovaries [Unknown]
  - Weight increased [Unknown]
  - Galactorrhoea [Unknown]
  - Endocrine disorder [Unknown]
  - Galactorrhoea [Unknown]
  - Metabolic disorder [Unknown]
  - Hyperuricaemia [Unknown]
  - Anxiety [Unknown]
  - White blood cell count decreased [Unknown]
  - White blood cell disorder [Unknown]
  - Alopecia [Unknown]
  - Eye disorder [Unknown]
  - Pyrexia [Unknown]
  - Oedema peripheral [Unknown]
  - Tremor [Unknown]
  - Constipation [Unknown]
  - Amenorrhoea-galactorrhoea syndrome [Unknown]
  - Galactorrhoea [Unknown]
  - Vision blurred [Unknown]
  - Gynaecomastia [Unknown]
